FAERS Safety Report 13473784 (Version 2)
Quarter: 2017Q2

REPORT INFORMATION
  Report Type: Spontaneous
  Country: NL (occurrence: NL)
  Receive Date: 20170424
  Receipt Date: 20170505
  Transmission Date: 20170830
  Serious: Yes (Other)
  Sender: FDA-Public Use
  Company Number: NL-PFIZER INC-2017175677

PATIENT
  Age: 85 Year
  Sex: Male

DRUGS (11)
  1. SOMAVERT [Suspect]
     Active Substance: PEGVISOMANT
     Indication: ACROMEGALY
     Dosage: 20 MG, 1X/DAY
     Route: 058
     Dates: start: 20110121
  2. CABERGOLINE. [Concomitant]
     Active Substance: CABERGOLINE
     Dosage: 0.5 MG, 2X/WEEK 2 TABLETS
     Route: 048
  3. ACETYLSALICYLZUUR [Concomitant]
     Active Substance: ASPIRIN
     Dosage: 80 MG, 1X/DAY
     Route: 048
  4. CANDESARTAN HYDROCHLOROTHIAZIDE ACTAVIS [Concomitant]
     Dosage: 16/12.5 MG, 1X/DAY
  5. ESOMEPRAZOL /01479301/ [Concomitant]
     Active Substance: ESOMEPRAZOLE
     Dosage: 20 MG, 1X/DAY
     Route: 048
  6. AMLODIPINE [Concomitant]
     Active Substance: AMLODIPINE BESYLATE
     Dosage: 10 MG, 1X/DAY
     Route: 048
  7. MACROGOL [Concomitant]
     Active Substance: POLYETHYLENE GLYCOLS
     Dosage: 1 DF, 1X/DAY
     Route: 048
  8. DICLOFENAC NA [Concomitant]
     Active Substance: DICLOFENAC SODIUM
     Dosage: 75 MG, 2X/DAY
     Route: 048
  9. COLECALCIFEROL [Concomitant]
     Active Substance: CHOLECALCIFEROL
     Dosage: 1X/MONTH 2 AMPOULES
  10. OXYCODON [Concomitant]
     Active Substance: OXYCODONE
     Dosage: 5 MG, 1X/DAY
     Route: 048
  11. PARACETAMOL [Concomitant]
     Active Substance: ACETAMINOPHEN
     Dosage: 1000 MG, 3X/DAY
     Route: 048

REACTIONS (3)
  - Dizziness [Unknown]
  - Fall [Unknown]
  - Balance disorder [Unknown]

NARRATIVE: CASE EVENT DATE: 20170322
